FAERS Safety Report 17044857 (Version 1)
Quarter: 2019Q4

REPORT INFORMATION
  Report Type: Other
  Country: US (occurrence: US)
  Receive Date: 20191118
  Receipt Date: 20191118
  Transmission Date: 20200122
  Serious: Yes (Other)
  Sender: FDA-Public Use
  Company Number: US-ALSI-201900474

PATIENT
  Age: 46 Year
  Sex: Female

DRUGS (1)
  1. NITROUS OXIDE. [Suspect]
     Active Substance: NITROUS OXIDE
     Indication: SUBSTANCE ABUSE
     Route: 055

REACTIONS (2)
  - Substance abuse [Recovering/Resolving]
  - Subacute combined cord degeneration [Recovering/Resolving]
